FAERS Safety Report 20710642 (Version 1)
Quarter: 2022Q2

REPORT INFORMATION
  Report Type: Spontaneous
  Country: MX (occurrence: MX)
  Receive Date: 20220414
  Receipt Date: 20220414
  Transmission Date: 20220721
  Serious: Yes (Other)
  Sender: FDA-Public Use
  Company Number: MX-ELI_LILLY_AND_COMPANY-MX202204002945

PATIENT
  Age: 74 Year
  Sex: Male

DRUGS (2)
  1. CYRAMZA [Suspect]
     Active Substance: RAMUCIRUMAB
     Indication: Adenocarcinoma gastric
     Dosage: UNK UNK, UNKNOWN
     Route: 065
     Dates: start: 201601, end: 201610
  2. PACLITAXEL [Concomitant]
     Active Substance: PACLITAXEL
     Indication: Adenocarcinoma gastric
     Dosage: UNK
     Dates: start: 201601

REACTIONS (5)
  - Neuropathy peripheral [Unknown]
  - Weight decreased [Unknown]
  - Neuropathy peripheral [Unknown]
  - Neutropenia [Unknown]
  - Asthenia [Unknown]
